FAERS Safety Report 18142818 (Version 1)
Quarter: 2020Q3

REPORT INFORMATION
  Report Type: Spontaneous
  Country: CN (occurrence: CN)
  Receive Date: 20200812
  Receipt Date: 20200812
  Transmission Date: 20201103
  Serious: Yes (Other)
  Sender: FDA-Public Use
  Company Number: CN-PFIZER INC-2020304222

PATIENT
  Age: 3 Year
  Sex: Female
  Weight: 18 kg

DRUGS (3)
  1. SODIUM CHLORIDE 0.9% [Concomitant]
     Active Substance: SODIUM CHLORIDE
     Indication: VEHICLE SOLUTION USE
     Dosage: 250 ML, 1X/DAY
     Route: 041
     Dates: start: 20200423, end: 20200502
  2. SOLU?MEDROL [Suspect]
     Active Substance: METHYLPREDNISOLONE SODIUM SUCCINATE
     Indication: COAGULOPATHY
  3. SOLU?MEDROL [Suspect]
     Active Substance: METHYLPREDNISOLONE SODIUM SUCCINATE
     Indication: AUTOIMMUNE HAEMOLYTIC ANAEMIA
     Dosage: 240 MG, 1X/DAY
     Route: 041
     Dates: start: 20200424, end: 20200429

REACTIONS (3)
  - Shock [Recovering/Resolving]
  - Hypercoagulation [Recovering/Resolving]
  - Activated partial thromboplastin time shortened [Recovering/Resolving]

NARRATIVE: CASE EVENT DATE: 20200429
